FAERS Safety Report 24721658 (Version 1)
Quarter: 2024Q4

REPORT INFORMATION
  Report Type: Spontaneous
  Country: US (occurrence: US)
  Receive Date: 20241211
  Receipt Date: 20241211
  Transmission Date: 20250114
  Serious: No
  Sender: CSL BEHRING
  Company Number: US-BEH-2024186359

PATIENT

DRUGS (2)
  1. HIZENTRA [Suspect]
     Active Substance: HUMAN IMMUNOGLOBULIN G
     Indication: Product used for unknown indication
     Dosage: 4 G
     Route: 065
  2. HIZENTRA [Suspect]
     Active Substance: HUMAN IMMUNOGLOBULIN G
     Dosage: 4 G
     Route: 065
     Dates: start: 20241120

REACTIONS (5)
  - Infusion site pain [Unknown]
  - Pain [Unknown]
  - Injection site pain [Unknown]
  - Peripheral swelling [Unknown]
  - Drug intolerance [Unknown]
